FAERS Safety Report 14474254 (Version 1)
Quarter: 2018Q1

REPORT INFORMATION
  Report Type: Spontaneous
  Country: US (occurrence: US)
  Receive Date: 20180201
  Receipt Date: 20180201
  Transmission Date: 20180509
  Serious: Yes (Other)
  Sender: FDA-Public Use
  Company Number: US-MYLANLABS-2018M1005200

PATIENT
  Sex: Female
  Weight: 64 kg

DRUGS (1)
  1. ESOMEPRAZOLE MAGNESIUM D/R [Suspect]
     Active Substance: ESOMEPRAZOLE MAGNESIUM
     Indication: GASTROOESOPHAGEAL REFLUX DISEASE
     Dosage: UNK
     Route: 048

REACTIONS (7)
  - Dizziness [Recovered/Resolved]
  - Retinal haemorrhage [Not Recovered/Not Resolved]
  - Vision blurred [Not Recovered/Not Resolved]
  - Feeling abnormal [Recovered/Resolved]
  - Glaucoma [Not Recovered/Not Resolved]
  - Visual impairment [Not Recovered/Not Resolved]
  - Product tampering [Unknown]
